FAERS Safety Report 15526085 (Version 4)
Quarter: 2018Q4

REPORT INFORMATION
  Report Type: Spontaneous
  Country: JP (occurrence: JP)
  Receive Date: 20181018
  Receipt Date: 20181224
  Transmission Date: 20190205
  Serious: Yes (Death, Life-Threatening, Hospitalization)
  Sender: FDA-Public Use
  Company Number: JP-ASTRAZENECA-2018SF36618

PATIENT
  Age: 31065 Day
  Sex: Male
  Weight: 51 kg

DRUGS (3)
  1. ALBUMIN TANNATE [Concomitant]
     Active Substance: ALBUMIN BOVINE\TANNIC ACID
     Indication: DIARRHOEA
     Route: 048
     Dates: start: 20180501, end: 20180921
  2. LOPERAMIDE [Concomitant]
     Active Substance: LOPERAMIDE
     Indication: DIARRHOEA
     Dosage: 1.0MG AS REQUIRED
     Route: 048
     Dates: start: 20180501, end: 20180921
  3. TAGRISSO [Suspect]
     Active Substance: OSIMERTINIB
     Indication: NON-SMALL CELL LUNG CANCER
     Route: 048
     Dates: start: 20180903, end: 20180921

REACTIONS (3)
  - Interstitial lung disease [Fatal]
  - Cardiac failure [Fatal]
  - Blood pressure decreased [Fatal]

NARRATIVE: CASE EVENT DATE: 20180921
